FAERS Safety Report 12851918 (Version 2)
Quarter: 2016Q4

REPORT INFORMATION
  Report Type: Spontaneous
  Country: IT (occurrence: IT)
  Receive Date: 20161017
  Receipt Date: 20161107
  Transmission Date: 20170207
  Serious: Yes (Hospitalization)
  Sender: FDA-Public Use
  Company Number: IT-TEVA-699981ACC

PATIENT
  Age: 60 Year
  Sex: Male

DRUGS (3)
  1. ALLOPURINOLO [Concomitant]
     Active Substance: ALLOPURINOL
     Indication: HYPERURICAEMIA
  2. SILDENAFIL. [Suspect]
     Active Substance: SILDENAFIL
     Indication: RAYNAUD^S PHENOMENON
     Dosage: 60 MILLIGRAM DAILY;
     Route: 048
     Dates: end: 20160401
  3. ATORVASTATINA [Concomitant]
     Active Substance: ATORVASTATIN
     Indication: HYPERCHOLESTEROLAEMIA

REACTIONS (5)
  - Myocardial fibrosis [Unknown]
  - Peripheral ischaemia [Recovering/Resolving]
  - Off label use [Recovering/Resolving]
  - Ischaemia [Unknown]
  - Off label use of device [Unknown]

NARRATIVE: CASE EVENT DATE: 20110401
